FAERS Safety Report 18162932 (Version 2)
Quarter: 2021Q2

REPORT INFORMATION
  Report Type: Report from Study
  Country: ES (occurrence: ES)
  Receive Date: 20200818
  Receipt Date: 20210504
  Transmission Date: 20210717
  Serious: Yes (Death)
  Sender: FDA-Public Use
  Company Number: ES-PFIZER INC-2020310365

PATIENT
  Sex: Female

DRUGS (3)
  1. CARBOPLATIN. [Suspect]
     Active Substance: CARBOPLATIN
     Indication: CERVIX CARCINOMA
     Dosage: UNK, EVERY 3 WEEKS (AREA UNDER THE CURVE (AUC) 5, ON DAY 1 EVERY 3 WEEKS)
  2. PACLITAXEL. [Suspect]
     Active Substance: PACLITAXEL
     Indication: CERVIX CARCINOMA
     Dosage: 175 MG/M2, EVERY 3 WEEKS (ON DAY 1 EVERY 3 WEEKS)
  3. BEVACIZUMAB. [Suspect]
     Active Substance: BEVACIZUMAB
     Indication: CERVIX CARCINOMA
     Dosage: 15 MG/KG, EVERY 3 WEEKS (ON DAY 1 EVERY 3 WEEKS)

REACTIONS (1)
  - Febrile neutropenia [Fatal]
